FAERS Safety Report 13240814 (Version 3)
Quarter: 2019Q1

REPORT INFORMATION
  Report Type: Spontaneous
  Country: US (occurrence: US)
  Receive Date: 20170216
  Receipt Date: 20190222
  Transmission Date: 20190417
  Serious: Yes (Other)
  Sender: FDA-Public Use
  Company Number: US-JNJFOC-20170209268

PATIENT

DRUGS (4)
  1. IBRUTINIB [Suspect]
     Active Substance: IBRUTINIB
     Indication: CHRONIC LYMPHOCYTIC LEUKAEMIA
     Route: 048
  2. IBRUTINIB [Suspect]
     Active Substance: IBRUTINIB
     Indication: MANTLE CELL LYMPHOMA
     Route: 048
  3. IBRUTINIB [Suspect]
     Active Substance: IBRUTINIB
     Indication: CHRONIC LYMPHOCYTIC LEUKAEMIA
     Route: 048
  4. IBRUTINIB [Suspect]
     Active Substance: IBRUTINIB
     Indication: MANTLE CELL LYMPHOMA
     Route: 048

REACTIONS (26)
  - Diarrhoea [Unknown]
  - Nausea [Unknown]
  - Clostridium difficile infection [Unknown]
  - Lipase increased [Unknown]
  - Hypophosphataemia [Unknown]
  - Fatigue [Unknown]
  - Palpitations [Unknown]
  - Haematuria [Unknown]
  - Hyperglycaemia [Unknown]
  - Aspergillus infection [Unknown]
  - Dizziness [Unknown]
  - Epistaxis [Unknown]
  - Febrile neutropenia [Unknown]
  - Thrombocytopenia [Unknown]
  - Cellulitis [Unknown]
  - Infection [Unknown]
  - Transaminases increased [Unknown]
  - Neutropenia [Unknown]
  - Vitreous haemorrhage [Unknown]
  - Atrial fibrillation [Unknown]
  - Adrenal insufficiency [Unknown]
  - Influenza [Unknown]
  - Encephalitis [Unknown]
  - Pneumonitis [Unknown]
  - Anaemia [Unknown]
  - Sepsis [Unknown]
